FAERS Safety Report 21584364 (Version 4)
Quarter: 2024Q3

REPORT INFORMATION
  Report Type: Spontaneous
  Country: US (occurrence: US)
  Receive Date: 20221111
  Receipt Date: 20240821
  Transmission Date: 20241017
  Serious: No
  Sender: BIOGEN
  Company Number: US-BIOGEN-2022BI01158346

PATIENT
  Sex: Male

DRUGS (2)
  1. VUMERITY [Suspect]
     Active Substance: DIROXIMEL FUMARATE
     Indication: Multiple sclerosis
     Dosage: HARD?ALSO REPORTED TO BE STARTED ON 30-NOV-2020
     Route: 050
     Dates: start: 20201112, end: 20201118
  2. VUMERITY [Suspect]
     Active Substance: DIROXIMEL FUMARATE
     Dosage: HARD
     Route: 050
     Dates: start: 20201119

REACTIONS (4)
  - Balance disorder [Unknown]
  - Joint injury [Unknown]
  - Gait disturbance [Unknown]
  - Fall [Recovered/Resolved]

NARRATIVE: CASE EVENT DATE: 20210101
